FAERS Safety Report 7322213-1 (Version None)
Quarter: 2011Q1

REPORT INFORMATION
  Report Type: 
  Country: None (occurrence: None)
  Receive Date: 20110301
  Receipt Date: 20110223
  Transmission Date: 20110831
  Serious: Yes (Hospitalization, Other)
  Sender: FDA-Public Use
  Company Number: US-ASTRAZENECA-2007UW02024

PATIENT
  Age: 17192 Day
  Sex: Male
  Weight: 102.5 kg

DRUGS (16)
  1. PREVACID [Concomitant]
     Indication: GASTROOESOPHAGEAL REFLUX DISEASE
     Route: 048
     Dates: start: 20021218
  2. SEROQUEL [Suspect]
     Indication: BIPOLAR DISORDER
     Route: 048
     Dates: start: 20030101
  3. SEROQUEL [Suspect]
     Dosage: 300 MG-400 MG DAILY
     Route: 048
     Dates: start: 20030829
  4. COMBIVENT [Concomitant]
     Indication: CHRONIC OBSTRUCTIVE PULMONARY DISEASE
     Dosage: 1 PUFF TWO TIMES A DAY
     Route: 045
     Dates: start: 20050628
  5. XOPENEX [Concomitant]
     Indication: LUNG DISORDER
     Dosage: AS REQUIRED
     Route: 048
     Dates: start: 20040225
  6. CLONIDINE [Concomitant]
     Route: 048
     Dates: start: 20040223
  7. SEROQUEL [Suspect]
     Route: 048
     Dates: start: 20070129
  8. ZYPREXA [Concomitant]
     Route: 048
     Dates: start: 20030329
  9. PREVACID [Concomitant]
     Dosage: 25 QD
     Dates: start: 20070129
  10. CYMBALTA [Concomitant]
     Indication: DEPRESSION
     Dosage: 60MG-100MG AT BEDTIME
     Route: 048
     Dates: start: 20050627
  11. ADVAIR DISKUS 100/50 [Concomitant]
     Indication: CHRONIC OBSTRUCTIVE PULMONARY DISEASE
     Dosage: 1 PUFF TWO-THREE TIMES DAILY
     Route: 045
     Dates: start: 20040225
  12. ADVAIR DISKUS 100/50 [Concomitant]
     Dosage: 250/50 PRN
     Dates: start: 20070129
  13. LISINOPRIL [Concomitant]
     Indication: HYPERTENSION
     Dosage: 5MG-10MG DAILY
     Route: 048
     Dates: start: 20040913
  14. NORVASC [Concomitant]
     Route: 048
     Dates: start: 20050627
  15. LIPITOR [Concomitant]
     Dates: start: 20070129
  16. DOXEPIN [Concomitant]
     Indication: BIPOLAR DISORDER
     Dosage: 100MG-200MG DAILY
     Route: 048
     Dates: start: 20050628

REACTIONS (6)
  - RENAL FAILURE [None]
  - TYPE 2 DIABETES MELLITUS [None]
  - HYPERGLYCAEMIA [None]
  - RENAL FAILURE ACUTE [None]
  - WEIGHT INCREASED [None]
  - HAEMATURIA [None]
